FAERS Safety Report 5113070-2 (Version None)
Quarter: 2006Q3

REPORT INFORMATION
  Report Type: 
  Country: None (occurrence: None)
  Receive Date: 20060920
  Receipt Date: 20060908
  Transmission Date: 20061208
  Serious: Yes (Other)
  Sender: FDA-Public Use
  Company Number: 2006109046

PATIENT
  Age: 82 Year
  Sex: Male
  Weight: 45.8133 kg

DRUGS (6)
  1. NORVASC [Suspect]
     Indication: HYPERTENSION
     Dosage: 2.5 MG (2.5 MG, 1 IN 1 D)
  2. DIOVAN [Concomitant]
  3. CARDURA [Concomitant]
  4. PROBUCOL [Concomitant]
  5. NEXIUM [Concomitant]
  6. MULTI-VITAMIN PILLS (ASCORBIC ACID, ERGOCALCIFEROL, FOLIC ACID, NICOTI [Concomitant]

REACTIONS (5)
  - BLOOD CATECHOLAMINES INCREASED [None]
  - BLOOD PRESSURE INCREASED [None]
  - DRUG INTERACTION [None]
  - FLUSHING [None]
  - PALPITATIONS [None]
